FAERS Safety Report 8491973-9 (Version None)
Quarter: 2012Q3

REPORT INFORMATION
  Report Type: 
  Country: None (occurrence: None)
  Receive Date: 20120706
  Receipt Date: 20120702
  Transmission Date: 20120928
  Serious: Yes (Death, Other)
  Sender: FDA-Public Use
  Company Number: DE-GENZYME-201021821GPV

PATIENT
  Age: 62 Year
  Sex: Male

DRUGS (12)
  1. CAMPATH [Suspect]
     Indication: T-CELL LYMPHOMA
     Dosage: DOSE ESCALATION VIA 10 / 20 / 30 MG PER DAY ON 3 CONSECUTIVE DAYS IN CYCLE 1
     Route: 058
     Dates: start: 20091105
  2. CAMPATH [Suspect]
     Dosage: A-CHOP-14, TREATMENT DAYS 1 AND 2 IN CYCLES 2 TO 6 EVERY 2 WEEKS
     Route: 058
     Dates: start: 20091106, end: 20091230
  3. TRIMETHOPRIM/SULFAMETHOXAZOL [Concomitant]
     Indication: INFECTION PROPHYLAXIS
     Dosage: UNK, QD
     Route: 048
     Dates: start: 20091101, end: 20100118
  4. PREDNISONE TAB [Suspect]
     Indication: T-CELL LYMPHOMA
     Dosage: A-CHOP-14, TREATMENT DAYS 1-5  PER CYCLE EVERY 2 WEEKS
     Route: 048
     Dates: start: 20091105, end: 20091230
  5. PEGFILGRASTIM [Suspect]
     Indication: PROPHYLAXIS
  6. VALACICLOVIR [Concomitant]
     Indication: INFECTION PROPHYLAXIS
     Dosage: 500 MG TID
     Route: 048
     Dates: start: 20091101, end: 20100118
  7. VINCRISTINE [Suspect]
     Indication: T-CELL LYMPHOMA
     Dosage: A-CHOP-14, TREATMENT DAY 1 PER CYCLE
     Route: 042
     Dates: start: 20091105, end: 20091230
  8. PREDNISONE TAB [Concomitant]
     Indication: HYPEREOSINOPHILIC SYNDROME
     Dosage: UNK
     Route: 065
  9. FLUCONAZOLE [Concomitant]
     Indication: INFECTION PROPHYLAXIS
     Dosage: UNK, QD
     Route: 048
     Dates: start: 20091101, end: 20100118
  10. CYCLOPHOSPHAMIDE [Suspect]
     Indication: T-CELL LYMPHOMA
     Dosage: A-CHOP-14, TREATMENT DAY 1 PER CYCLE
     Route: 042
     Dates: start: 20091105, end: 20091230
  11. DOXORUBICIN HCL [Suspect]
     Indication: T-CELL LYMPHOMA
     Dosage: A-CHOP-14, TREATMENT DAY 1 PER CYCLE
     Route: 042
     Dates: start: 20091105, end: 20091230
  12. PEGFILGRASTIM [Suspect]
     Indication: T-CELL LYMPHOMA
     Dosage: A-CHOP-14, ON TREATMENT DAY 4 PER CYCLE
     Route: 058
     Dates: start: 20091108, end: 20091230

REACTIONS (4)
  - ADENOVIRUS INFECTION [None]
  - VIRAL TEST POSITIVE [None]
  - HEPATIC FAILURE [None]
  - RENAL FAILURE [None]
